FAERS Safety Report 9519539 (Version 1)
Quarter: 2013Q3

REPORT INFORMATION
  Report Type: Spontaneous
  Country: US (occurrence: US)
  Receive Date: 20130912
  Receipt Date: 20130912
  Transmission Date: 20140515
  Serious: Yes (Hospitalization)
  Sender: FDA-Public Use
  Company Number: US-AMGEN-USASP2013063601

PATIENT
  Age: 52 Year
  Sex: Female

DRUGS (2)
  1. ENBREL [Suspect]
     Indication: RHEUMATOID ARTHRITIS
     Dosage: 50 MG, QWK
     Route: 065
     Dates: start: 20021101
  2. METHOTREXATE [Concomitant]
     Dosage: UNK

REACTIONS (3)
  - Prosthesis implantation [Recovered/Resolved]
  - Device related infection [Recovered/Resolved]
  - Arthritis bacterial [Recovered/Resolved]
